FAERS Safety Report 23942458 (Version 1)
Quarter: 2024Q2

REPORT INFORMATION
  Report Type: Spontaneous
  Country: US (occurrence: US)
  Receive Date: 20240605
  Receipt Date: 20240605
  Transmission Date: 20240715
  Serious: No
  Sender: FDA-Public Use
  Company Number: US-BAYER-2024A074674

PATIENT
  Sex: Female

DRUGS (4)
  1. CLIMARA [Suspect]
     Active Substance: ESTRADIOL
     Indication: Polycystic ovarian syndrome
     Route: 062
  2. MINIVELLE [Suspect]
     Active Substance: ESTRADIOL
     Indication: Polycystic ovarian syndrome
     Dosage: 0.037 MG
     Route: 062
  3. ESTRADIOL [Suspect]
     Active Substance: ESTRADIOL
  4. PROGESTERONE [Suspect]
     Active Substance: PROGESTERONE
     Dosage: 75 MG
     Route: 048

REACTIONS (1)
  - Pelvic pain [None]
